FAERS Safety Report 12498213 (Version 2)
Quarter: 2016Q3

REPORT INFORMATION
  Report Type: Spontaneous
  Country: US (occurrence: US)
  Receive Date: 20160627
  Receipt Date: 20160722
  Transmission Date: 20161109
  Serious: Yes (Hospitalization)
  Sender: FDA-Public Use
  Company Number: US-009507513-1606USA008584

PATIENT
  Age: 60 Year
  Sex: Female

DRUGS (2)
  1. CUBICIN [Suspect]
     Active Substance: DAPTOMYCIN
     Indication: INTERVERTEBRAL DISCITIS
     Dosage: UNK
  2. INVANZ [Concomitant]
     Active Substance: ERTAPENEM SODIUM
     Indication: INTERVERTEBRAL DISCITIS
     Dosage: UNK
     Route: 042

REACTIONS (1)
  - Eosinophilic pneumonia [Recovering/Resolving]
